FAERS Safety Report 24711829 (Version 2)
Quarter: 2025Q2

REPORT INFORMATION
  Report Type: Report from Study
  Country: GB (occurrence: GB)
  Receive Date: 20241209
  Receipt Date: 20250425
  Transmission Date: 20250716
  Serious: Yes (Hospitalization)
  Sender: SAMSUNG BIOEPIS
  Company Number: GB-SAMSUNG BIOEPIS-SB-2024-36808

PATIENT
  Age: 72 Year
  Sex: Female

DRUGS (2)
  1. ETANERCEPT [Suspect]
     Active Substance: ETANERCEPT
     Indication: Psoriatic arthropathy
     Route: 058
     Dates: end: 20241231
  2. ETANERCEPT [Suspect]
     Active Substance: ETANERCEPT
     Route: 058
     Dates: start: 20250319

REACTIONS (7)
  - Lower respiratory tract infection [Unknown]
  - Nasopharyngitis [Unknown]
  - Sepsis [Unknown]
  - Infection [Unknown]
  - Dehydration [Unknown]
  - Thrombosis [Unknown]
  - Dyspnoea [Unknown]
